FAERS Safety Report 8547749-7 (Version None)
Quarter: 2012Q3

REPORT INFORMATION
  Report Type: 
  Country: None (occurrence: None)
  Receive Date: 20120727
  Receipt Date: 20111206
  Transmission Date: 20120928
  Serious: Yes (Other)
  Sender: FDA-Public Use
  Company Number: US-ASTRAZENECA-2011SE73951

PATIENT
  Age: 19 Year
  Sex: Male
  Weight: 63.5 kg

DRUGS (8)
  1. TEPRA [Concomitant]
  2. SEROQUEL [Suspect]
     Indication: BIPOLAR DISORDER
     Route: 048
  3. CONCERTA [Concomitant]
  4. RITALIN [Concomitant]
  5. LITHIUM CARBONATE [Concomitant]
  6. XANAX [Concomitant]
  7. SEROQUEL [Suspect]
     Route: 048
  8. LICTAL [Concomitant]
     Dosage: 100 MG AM 300 MG PM

REACTIONS (7)
  - GRAND MAL CONVULSION [None]
  - DRUG DOSE OMISSION [None]
  - HEADACHE [None]
  - NAUSEA [None]
  - TREMOR [None]
  - DIZZINESS [None]
  - DRUG WITHDRAWAL SYNDROME [None]
